FAERS Safety Report 5393657-2 (Version None)
Quarter: 2007Q3

REPORT INFORMATION
  Report Type: 
  Country: None (occurrence: None)
  Receive Date: 20070719
  Receipt Date: 20070719
  Transmission Date: 20080115
  Serious: Yes (Other)
  Sender: FDA-Public Use
  Company Number: None

PATIENT
  Age: 44 Year
  Sex: Female
  Weight: 63.05 kg

DRUGS (7)
  1. REMICADE [Suspect]
     Indication: RHEUMATOID ARTHRITIS
     Dosage: 320MG Q8WKS IV
     Route: 042
     Dates: start: 20061206
  2. REMICADE [Suspect]
     Indication: RHEUMATOID ARTHRITIS
     Dosage: 320MG Q8WKS IV
     Route: 042
     Dates: start: 20061220
  3. REMICADE [Suspect]
     Indication: RHEUMATOID ARTHRITIS
     Dosage: 320MG Q8WKS IV
     Route: 042
     Dates: start: 20070122
  4. REMICADE [Suspect]
     Indication: RHEUMATOID ARTHRITIS
     Dosage: 320MG Q8WKS IV
     Route: 042
     Dates: start: 20070319
  5. REMICADE [Suspect]
     Indication: RHEUMATOID ARTHRITIS
     Dosage: 320MG Q8WKS IV
     Route: 042
     Dates: start: 20070514
  6. REMICADE [Suspect]
     Indication: RHEUMATOID ARTHRITIS
     Dosage: 320MG Q8WKS IV
     Route: 042
     Dates: start: 20070709
  7. REMICADE [Suspect]

REACTIONS (2)
  - PRURITUS [None]
  - URTICARIA [None]
